FAERS Safety Report 17006900 (Version 1)
Quarter: 2019Q4

REPORT INFORMATION
  Report Type: Spontaneous
  Country: US (occurrence: US)
  Receive Date: 20191107
  Receipt Date: 20191107
  Transmission Date: 20200122
  Serious: No
  Sender: FDA-Public Use
  Company Number: US-009507513-1910USA014251

PATIENT
  Age: 14 Year
  Sex: Female

DRUGS (13)
  1. PROMETHAZINE [Suspect]
     Active Substance: PROMETHAZINE HYDROCHLORIDE
     Indication: CYCLIC VOMITING SYNDROME
  2. DULOXETINE HYDROCHLORIDE. [Suspect]
     Active Substance: DULOXETINE HYDROCHLORIDE
     Indication: CYCLIC VOMITING SYNDROME
  3. DIPHENHYDRAMINE. [Suspect]
     Active Substance: DIPHENHYDRAMINE
     Indication: CYCLIC VOMITING SYNDROME
  4. AMITRIPTYLINE HYDROCHLORIDE. [Suspect]
     Active Substance: AMITRIPTYLINE HYDROCHLORIDE
     Indication: CYCLIC VOMITING SYNDROME
  5. TOPIRAMATE. [Suspect]
     Active Substance: TOPIRAMATE
     Indication: CYCLIC VOMITING SYNDROME
  6. PROCHLORPERAZINE. [Suspect]
     Active Substance: PROCHLORPERAZINE
     Indication: CYCLIC VOMITING SYNDROME
  7. SCOPOLAMINE [Suspect]
     Active Substance: SCOPOLAMINE
     Indication: CYCLIC VOMITING SYNDROME
  8. LORAZEPAM. [Suspect]
     Active Substance: LORAZEPAM
     Indication: CYCLIC VOMITING SYNDROME
  9. REMERON [Suspect]
     Active Substance: MIRTAZAPINE
     Indication: CYCLIC VOMITING SYNDROME
     Dosage: UNK
     Route: 048
  10. DIAZEPAM. [Suspect]
     Active Substance: DIAZEPAM
     Indication: CYCLIC VOMITING SYNDROME
  11. CYPROHEPTADINE HYDROCHLORIDE. [Suspect]
     Active Substance: CYPROHEPTADINE HYDROCHLORIDE
     Indication: CYCLIC VOMITING SYNDROME
  12. ONDANSETRON [Suspect]
     Active Substance: ONDANSETRON
     Indication: CYCLIC VOMITING SYNDROME
  13. LANSOPRAZOLE. [Suspect]
     Active Substance: LANSOPRAZOLE
     Indication: CYCLIC VOMITING SYNDROME

REACTIONS (1)
  - Product use in unapproved indication [Unknown]
